FAERS Safety Report 17604281 (Version 1)
Quarter: 2020Q1

REPORT INFORMATION
  Report Type: Spontaneous
  Country: US (occurrence: US)
  Receive Date: 20200331
  Receipt Date: 20200331
  Transmission Date: 20200409
  Serious: Yes (Other)
  Sender: FDA-Public Use
  Company Number: US-JNJFOC-20200332881

PATIENT
  Age: 74 Year
  Sex: Female
  Weight: 68.1 kg

DRUGS (4)
  1. METOPROLOL. [Concomitant]
     Active Substance: METOPROLOL
  2. METFORMIN [Concomitant]
     Active Substance: METFORMIN HYDROCHLORIDE
  3. SIMVASTATIN. [Concomitant]
     Active Substance: SIMVASTATIN
  4. RIVAROXABAN [Suspect]
     Active Substance: RIVAROXABAN
     Indication: CEREBROVASCULAR ACCIDENT PROPHYLAXIS
     Dosage: 5045857989
     Route: 048
     Dates: start: 2017

REACTIONS (3)
  - Neoplasm malignant [Not Recovered/Not Resolved]
  - Lung neoplasm malignant [Not Recovered/Not Resolved]
  - Hepatic neoplasm [Not Recovered/Not Resolved]

NARRATIVE: CASE EVENT DATE: 201708
